FAERS Safety Report 11535746 (Version 1)
Quarter: 2015Q3

REPORT INFORMATION
  Report Type: Spontaneous
  Country: US (occurrence: None)
  Receive Date: 20150921
  Receipt Date: 20150921
  Transmission Date: 20151125
  Serious: Yes (Other)
  Sender: FDA-Public Use
  Company Number: None

PATIENT
  Age: 20 Year
  Sex: Female
  Weight: 77.57 kg

DRUGS (1)
  1. XULANE [Suspect]
     Active Substance: ETHINYL ESTRADIOL\NORELGESTROMIN
     Indication: CONTRACEPTION
     Dosage: XULANE  QWK X3  TRANSDER
     Route: 062
     Dates: start: 20150701

REACTIONS (3)
  - Muscle spasms [None]
  - Product substitution issue [None]
  - Haemorrhage [None]

NARRATIVE: CASE EVENT DATE: 20150723
